FAERS Safety Report 4859868-7 (Version None)
Quarter: 2005Q4

REPORT INFORMATION
  Report Type: 
  Country: None (occurrence: None)
  Receive Date: 20051215
  Receipt Date: 20051209
  Transmission Date: 20060501
  Serious: Yes (Death)
  Sender: FDA-Public Use
  Company Number: 200514286GDS

PATIENT
  Age: 75 Year
  Sex: Male

DRUGS (6)
  1. ASPIRIN [Suspect]
     Indication: THROMBOSIS PROPHYLAXIS
     Dosage: 100 MG, QD, ORAL
     Route: 048
     Dates: start: 20050101, end: 20050927
  2. GLUCOPHAGE [Suspect]
     Indication: DIABETES MELLITUS NON-INSULIN-DEPENDENT
     Dosage: 500 MG, TID, ORAL
     Route: 048
     Dates: start: 20050101, end: 20050927
  3. SELPRAN 20 MG (PRAVASTATIN NA) PRAVASTATIN SODIUM) [Concomitant]
     Indication: HYPERLIPIDAEMIA
     Dosage: 20 MG, QD, ORAL
     Route: 048
     Dates: start: 20050101, end: 20050927
  4. EFFEXOR [Suspect]
     Indication: AFFECTIVE DISORDER
     Dosage: 75 MG, QD, ORAL
     Route: 048
     Dates: start: 20050101, end: 20050927
  5. LISINOPRIL [Suspect]
     Indication: ESSENTIAL HYPERTENSION
     Dosage: 2.5 MG, TOTAL DAILY, ORAL
     Route: 048
     Dates: start: 20050101, end: 20050927
  6. NEXIUM [Suspect]
     Indication: DYSPEPSIA
     Dosage: QD, ORAL
     Route: 048
     Dates: start: 20050101, end: 20050627

REACTIONS (4)
  - ENCEPHALOPATHY [None]
  - HEPATIC FAILURE [None]
  - HEPATITIS CHOLESTATIC [None]
  - JAUNDICE CHOLESTATIC [None]
